FAERS Safety Report 17577999 (Version 3)
Quarter: 2023Q2

REPORT INFORMATION
  Report Type: Spontaneous
  Country: US (occurrence: US)
  Receive Date: 20200324
  Receipt Date: 20230511
  Transmission Date: 20230721
  Serious: Yes (Other)
  Sender: FDA-Public Use
  Company Number: US-GILEAD-2020-0455850

PATIENT
  Sex: Male
  Weight: 81.646 kg

DRUGS (48)
  1. TRUVADA [Suspect]
     Active Substance: EMTRICITABINE\TENOFOVIR DISOPROXIL FUMARATE
     Indication: HIV infection
     Dosage: UNK
     Route: 048
     Dates: start: 2004, end: 20130707
  2. BIKTARVY [Concomitant]
     Active Substance: BICTEGRAVIR SODIUM\EMTRICITABINE\TENOFOVIR ALAFENAMIDE FUMARATE
  3. EMTRIVA [Concomitant]
     Active Substance: EMTRICITABINE
  4. LISINOPRIL ALPHARMA [Concomitant]
  5. EPZICOM [Concomitant]
     Active Substance: ABACAVIR SULFATE\LAMIVUDINE
  6. ISENTRESS [Concomitant]
     Active Substance: RALTEGRAVIR POTASSIUM
  7. KALETRA [Concomitant]
     Active Substance: LOPINAVIR\RITONAVIR
  8. NORVIR [Concomitant]
     Active Substance: RITONAVIR
  9. PREZISTA [Concomitant]
     Active Substance: DARUNAVIR ETHANOLATE
  10. TIVICAY [Concomitant]
     Active Substance: DOLUTEGRAVIR SODIUM
  11. ZIAGEN [Concomitant]
     Active Substance: ABACAVIR SULFATE
  12. ACETAMINOPHEN [Concomitant]
     Active Substance: ACETAMINOPHEN
  13. ASPIRIN [Concomitant]
     Active Substance: ASPIRIN
  14. ATORVASTATIN [Concomitant]
     Active Substance: ATORVASTATIN
  15. AZITHROMYCIN [Concomitant]
     Active Substance: AZITHROMYCIN
  16. BACTRIM [Concomitant]
     Active Substance: SULFAMETHOXAZOLE\TRIMETHOPRIM
  17. CHOLECALCIFEROL [Concomitant]
     Active Substance: CHOLECALCIFEROL
  18. VITAMIN D3 [Concomitant]
     Active Substance: CHOLECALCIFEROL
  19. CIALIS [Concomitant]
     Active Substance: TADALAFIL
  20. COREG [Concomitant]
     Active Substance: CARVEDILOL
  21. CRESTOR [Concomitant]
     Active Substance: ROSUVASTATIN CALCIUM
  22. DELESTROGEN [Concomitant]
     Active Substance: ESTRADIOL VALERATE
  23. EPOGEN [Concomitant]
     Active Substance: ERYTHROPOIETIN
  24. FENTANYL [Concomitant]
     Active Substance: FENTANYL
  25. FLOMAX [Concomitant]
     Active Substance: TAMSULOSIN HYDROCHLORIDE
  26. FLUARIX NOS [Concomitant]
     Active Substance: INFLUENZA VIRUS VACCINE
  27. HUMULIN C [Concomitant]
  28. LISINOPRIL [Concomitant]
     Active Substance: LISINOPRIL
  29. LOPERAMIDE [Concomitant]
     Active Substance: LOPERAMIDE
  30. LYRICA [Concomitant]
     Active Substance: PREGABALIN
  31. OXAYDO [Concomitant]
     Active Substance: OXYCODONE HYDROCHLORIDE
  32. PREDNISONE [Concomitant]
     Active Substance: PREDNISONE
  33. ALBUTEROL SULFATE [Concomitant]
     Active Substance: ALBUTEROL SULFATE
  34. SINGULAIR [Concomitant]
     Active Substance: MONTELUKAST SODIUM
  35. SPIRONOLACTONE [Concomitant]
     Active Substance: SPIRONOLACTONE
  36. TESSALON [Concomitant]
     Active Substance: BENZONATATE
  37. TIZANIDINE [Concomitant]
     Active Substance: TIZANIDINE
  38. TRAMADOL [Concomitant]
     Active Substance: TRAMADOL
  39. TYLENOL [Concomitant]
     Active Substance: ACETAMINOPHEN
  40. VIRAMUNE [Concomitant]
     Active Substance: NEVIRAPINE
  41. XANAX [Concomitant]
     Active Substance: ALPRAZOLAM
  42. CYCLOBENZAPRINE [Concomitant]
     Active Substance: CYCLOBENZAPRINE
  43. LASIX [Concomitant]
     Active Substance: FUROSEMIDE
  44. LANTUS SOLOSTAR [Concomitant]
     Active Substance: INSULIN GLARGINE
  45. NEOMYCIN AND POLYMYXIN B SULFATES AND HYDROCORTISONE [Concomitant]
     Active Substance: HYDROCORTISONE\NEOMYCIN SULFATE\POLYMYXIN B SULFATE
  46. OMEGA-3-ACID ETHYL ESTERS [Concomitant]
     Active Substance: OMEGA-3-ACID ETHYL ESTERS
  47. PROZAC [Concomitant]
     Active Substance: FLUOXETINE HYDROCHLORIDE
  48. TRIUMEQ [Concomitant]
     Active Substance: ABACAVIR SULFATE\DOLUTEGRAVIR SODIUM\LAMIVUDINE

REACTIONS (9)
  - Chronic kidney disease [Not Recovered/Not Resolved]
  - Renal injury [Unknown]
  - Renal impairment [Unknown]
  - Pain [Not Recovered/Not Resolved]
  - Emotional distress [Not Recovered/Not Resolved]
  - Anxiety [Not Recovered/Not Resolved]
  - Anhedonia [Not Recovered/Not Resolved]
  - Economic problem [Not Recovered/Not Resolved]
  - Proteinuria [Not Recovered/Not Resolved]

NARRATIVE: CASE EVENT DATE: 20130101
